FAERS Safety Report 10812721 (Version 6)
Quarter: 2017Q3

REPORT INFORMATION
  Report Type: Spontaneous
  Country: US (occurrence: US)
  Receive Date: 20150218
  Receipt Date: 20170710
  Transmission Date: 20171127
  Serious: Yes (Hospitalization, Disabling)
  Sender: FDA-Public Use
  Company Number: US-BAUSCH-BL-2015-000855

PATIENT
  Age: 67 Year
  Sex: Female

DRUGS (15)
  1. XENAZINE [Suspect]
     Active Substance: TETRABENAZINE
     Route: 048
     Dates: start: 201104
  2. ACETAMINOPHEN AND CODEINE [Concomitant]
     Active Substance: ACETAMINOPHEN\CODEINE PHOSPHATE
     Indication: PRODUCT USED FOR UNKNOWN INDICATION
     Dosage: AS NEEDED.
     Route: 048
  3. TYLENOL EXTRA STRENGTH [Concomitant]
     Active Substance: ACETAMINOPHEN
     Indication: PRODUCT USED FOR UNKNOWN INDICATION
     Dosage: AS NEEDED
     Route: 048
  4. LISINOPRIL. [Concomitant]
     Active Substance: LISINOPRIL
     Indication: PRODUCT USED FOR UNKNOWN INDICATION
     Route: 048
  5. BONIVA [Concomitant]
     Active Substance: IBANDRONATE SODIUM
     Indication: PRODUCT USED FOR UNKNOWN INDICATION
     Dosage: 150 MG MONTHLY
     Route: 048
  6. XENAZINE [Suspect]
     Active Substance: TETRABENAZINE
     Indication: HUNTINGTON^S DISEASE
     Route: 048
     Dates: start: 2011
  7. XENAZINE [Suspect]
     Active Substance: TETRABENAZINE
     Indication: CHOREA
     Route: 048
  8. XENAZINE [Suspect]
     Active Substance: TETRABENAZINE
     Route: 048
  9. XENAZINE [Suspect]
     Active Substance: TETRABENAZINE
     Route: 048
  10. NYQUIL D [Concomitant]
     Indication: PRODUCT USED FOR UNKNOWN INDICATION
     Dosage: 15-500-15 MG  ?AS NEEDED
     Route: 048
  11. MELATONIN [Concomitant]
     Active Substance: MELATONIN
     Indication: PRODUCT USED FOR UNKNOWN INDICATION
     Route: 048
  12. HYDROCODONE [Concomitant]
     Active Substance: HYDROCODONE
     Indication: PAIN
     Dosage: OCCASSIONALLY
  13. TYLENOL WITH CODEINE [Concomitant]
     Active Substance: ACETAMINOPHEN\CODEINE PHOSPHATE
     Indication: PRODUCT USED FOR UNKNOWN INDICATION
  14. ATIVAN [Suspect]
     Active Substance: LORAZEPAM
     Indication: AGITATION
     Route: 065
  15. XENAZINE [Suspect]
     Active Substance: TETRABENAZINE
     Dosage: 12.5 MG AS NEEDED FOR BREAKTHROUGH CHOREA
     Route: 048

REACTIONS (10)
  - Decubitus ulcer [Recovered/Resolved]
  - Depression [Unknown]
  - Loss of personal independence in daily activities [Unknown]
  - Nasopharyngitis [Unknown]
  - Pain [Recovered/Resolved]
  - Secretion discharge [Recovered/Resolved]
  - Restlessness [Recovered/Resolved]
  - Pneumonia [Recovered/Resolved]
  - Respiratory arrest [Recovered/Resolved]
  - Tracheostomy [Recovered/Resolved]

NARRATIVE: CASE EVENT DATE: 2014
